FAERS Safety Report 21328639 (Version 2)
Quarter: 2022Q3

REPORT INFORMATION
  Report Type: Report from Study
  Country: CN (occurrence: CN)
  Receive Date: 20220913
  Receipt Date: 20220928
  Transmission Date: 20221026
  Serious: Yes (Hospitalization)
  Sender: FDA-Public Use
  Company Number: CN-EVEREST MEDICINES II (HK) LIMITED-20220801756

PATIENT
  Age: 52 Year
  Sex: Male
  Weight: 40 kg

DRUGS (11)
  1. SACITUZUMAB GOVITECAN [Suspect]
     Active Substance: SACITUZUMAB GOVITECAN
     Indication: Neoplasm
     Dosage: 8 MG/KG, ON DAYS 1,8 OF DAY 21 (C1D8 03-AUG-2022)
     Route: 042
     Dates: start: 20220726
  2. SACITUZUMAB GOVITECAN [Suspect]
     Active Substance: SACITUZUMAB GOVITECAN
     Dosage: 8 MG/KG, ON DAYS 1,8 OF DAY 21 (C2D1 17-AUG-2022)
     Route: 042
     Dates: start: 20220817, end: 20220829
  3. TENOFOVIR ALAFENAMIDE [Concomitant]
     Active Substance: TENOFOVIR ALAFENAMIDE
     Indication: Hepatitis B
     Dosage: 250 MG, QD
     Route: 048
     Dates: start: 20220718
  4. URSODIOL [Concomitant]
     Active Substance: URSODIOL
     Indication: Prophylaxis
     Dosage: 0.5 G, BID
     Route: 048
  5. BICYCLOL [Concomitant]
     Active Substance: BICYCLOL
     Indication: Prophylaxis
     Dosage: UNK
     Dates: start: 20220718
  6. MORPHINE HYDROCHLORIDE [Concomitant]
     Active Substance: MORPHINE HYDROCHLORIDE
     Indication: Bone pain
     Dosage: 30 MG, QD
     Route: 048
     Dates: start: 20220718
  7. OXYCODONE HYDROCHLORIDE [Concomitant]
     Active Substance: OXYCODONE HYDROCHLORIDE
     Indication: Bone pain
     Dosage: 30 MG, Q12H
     Route: 048
     Dates: start: 20220727
  8. LEUCOGEN [Concomitant]
     Active Substance: LEUCOGEN
     Indication: White blood cell count
     Dosage: 20 MG, TID
     Route: 048
     Dates: start: 20220806, end: 20220816
  9. GRANULOCYTE COLONY-STIMULATING FACTOR NOS [Concomitant]
     Active Substance: GRANULOCYTE COLONY-STIMULATING FACTOR NOS
     Indication: White blood cell count
     Dosage: 0.125 MG, QD
     Dates: start: 20220813, end: 20220815
  10. SODIUM CHLORIDE [Concomitant]
     Active Substance: SODIUM CHLORIDE
     Indication: Hyponatraemia
     Dosage: 20 ML, Q12H
     Route: 042
     Dates: start: 20220816, end: 20220816
  11. SODIUM POTASSIUM MAGNESIUM CALCIUM AND GLUCOSE [Concomitant]
     Indication: Electrolyte imbalance
     Dosage: 250 ML, QD
     Route: 042
     Dates: start: 20220816, end: 20220816

REACTIONS (4)
  - Electrolyte imbalance [Recovered/Resolved]
  - Malnutrition [Not Recovered/Not Resolved]
  - Hypoglycaemia [Recovered/Resolved]
  - Malaise [Recovered/Resolved with Sequelae]

NARRATIVE: CASE EVENT DATE: 20220821
